FAERS Safety Report 21736359 (Version 1)
Quarter: 2022Q4

REPORT INFORMATION
  Report Type: Report from Study
  Country: CO (occurrence: CO)
  Receive Date: 20221215
  Receipt Date: 20221215
  Transmission Date: 20230113
  Serious: Yes (Other)
  Sender: FDA-Public Use
  Company Number: CO-ABBVIE-22K-036-4489659-00

PATIENT
  Sex: Female
  Weight: 73 kg

DRUGS (4)
  1. HUMIRA [Suspect]
     Active Substance: ADALIMUMAB
     Indication: Ankylosing spondylitis
     Route: 058
     Dates: end: 20220708
  2. HUMIRA [Suspect]
     Active Substance: ADALIMUMAB
  3. Cortioftal [Concomitant]
     Indication: Uveitis
     Dosage: 4 TIMES A DAY IN EACH EYE, PATIENT HAS BEEN APPLYING THEM FOR A LONG TIME AND IT IS NOT KNOWN IF ...
  4. DIHYDROCODEINE BITARTRATE [Suspect]
     Active Substance: DIHYDROCODEINE BITARTRATE
     Indication: Cough
     Dosage: PATIENT TOOK IT AT NIGHT
     Route: 048
     Dates: start: 202208

REACTIONS (22)
  - Central vision loss [Not Recovered/Not Resolved]
  - Somnolence [Recovered/Resolved]
  - Influenza [Not Recovered/Not Resolved]
  - Pyrexia [Recovered/Resolved]
  - Productive cough [Recovered/Resolved]
  - Macular hole [Not Recovered/Not Resolved]
  - Oropharyngeal pain [Not Recovered/Not Resolved]
  - Tremor [Recovered/Resolved]
  - Oropharyngeal discomfort [Not Recovered/Not Resolved]
  - Cough [Recovered/Resolved]
  - Superficial injury of eye [Not Recovered/Not Resolved]
  - Malaise [Recovered/Resolved]
  - Blindness [Not Recovered/Not Resolved]
  - Tachycardia [Recovered/Resolved]
  - Uveitis [Not Recovered/Not Resolved]
  - Ankylosing spondylitis [Unknown]
  - Uveitis [Not Recovered/Not Resolved]
  - Malaise [Unknown]
  - Cough [Recovering/Resolving]
  - Oropharyngeal discomfort [Not Recovered/Not Resolved]
  - Eye pruritus [Not Recovered/Not Resolved]
  - Eye disorder [Not Recovered/Not Resolved]

NARRATIVE: CASE EVENT DATE: 20220101
